FAERS Safety Report 7825376-4 (Version None)
Quarter: 2011Q4

REPORT INFORMATION
  Report Type: 
  Country: None (occurrence: None)
  Receive Date: 20111019
  Receipt Date: 20111010
  Transmission Date: 20120403
  Serious: Yes (Other)
  Sender: FDA-Public Use
  Company Number: PHHY2011US90834

PATIENT
  Age: 56 Year
  Sex: Male

DRUGS (7)
  1. CLOZAPINE [Suspect]
     Dosage: 200 MG, DAILY
     Route: 048
  2. CLOZAPINE [Suspect]
     Dosage: 150 MG, DAILY
     Route: 048
  3. CLOZAPINE [Suspect]
     Dosage: 500 MG, DAILY
     Route: 048
  4. CLOZAPINE [Suspect]
     Dosage: 100 MG, DAILY
     Route: 048
  5. VALPROIC ACID [Concomitant]
  6. CLOZAPINE [Suspect]
     Dosage: 125 MG, DAILY
     Route: 048
  7. HALOPERIDOL [Concomitant]
     Dosage: 10 MG, TWICE DAILY

REACTIONS (5)
  - ELECTROCARDIOGRAM QT PROLONGED [None]
  - THROMBOCYTOPENIA [None]
  - SEBORRHOEIC DERMATITIS [None]
  - ELECTROCARDIOGRAM T WAVE ABNORMAL [None]
  - EXCESSIVE MASTURBATION [None]
